FAERS Safety Report 7534978 (Version 4)
Quarter: 2013Q2

REPORT INFORMATION
  Report Type: Spontaneous
  Country: US (occurrence: US)
  Receive Date: 20100810
  Receipt Date: 20130605
  Transmission Date: 20140414
  Serious: Yes (Other)
  Sender: FDA-Public Use
  Company Number: US-PFIZER INC-2008085210

PATIENT
  Age: 53 Year
  Sex: Male
  Weight: 88.44 kg

DRUGS (4)
  1. LIPITOR [Suspect]
     Indication: BLOOD CHOLESTEROL INCREASED
     Dosage: UNK
     Route: 048
     Dates: end: 20040610
  2. LYRICA [Suspect]
     Indication: MUSCLE SPASMS
     Dosage: 75 MG, 1X/DAY
     Route: 048
     Dates: start: 20060703
  3. LYRICA [Suspect]
     Indication: MUSCLE SPASMS
     Dosage: 150 MG IN MORNING AND 300 MG IN EVENING
     Route: 048
  4. LISINOPRIL [Concomitant]
     Indication: HYPERTENSION
     Dosage: UNK

REACTIONS (15)
  - Abasia [Unknown]
  - Muscular weakness [Not Recovered/Not Resolved]
  - Muscle spasms [Not Recovered/Not Resolved]
  - Muscle spasms [Unknown]
  - Dyspnoea [Not Recovered/Not Resolved]
  - Loss of libido [Unknown]
  - Asthenia [Not Recovered/Not Resolved]
  - Myalgia [Not Recovered/Not Resolved]
  - Drug ineffective [Unknown]
  - Vitamin D deficiency [Unknown]
  - Hypersomnia [Unknown]
  - Nasopharyngitis [Not Recovered/Not Resolved]
  - Chills [Not Recovered/Not Resolved]
  - Muscle spasms [Unknown]
  - Pain [Unknown]
